FAERS Safety Report 21337389 (Version 5)
Quarter: 2022Q4

REPORT INFORMATION
  Report Type: Spontaneous
  Country: SK (occurrence: SK)
  Receive Date: 20220915
  Receipt Date: 20221221
  Transmission Date: 20230113
  Serious: Yes (Hospitalization, Other)
  Sender: FDA-Public Use
  Company Number: SK-TEVA-2022-SK-2063178

PATIENT
  Age: 36 Year
  Sex: Male

DRUGS (13)
  1. PACLITAXEL [Suspect]
     Active Substance: PACLITAXEL
     Indication: Chemotherapy
     Dosage: UNK
     Route: 065
     Dates: start: 2020
  2. PACLITAXEL [Suspect]
     Active Substance: PACLITAXEL
     Indication: Germ cell cancer
  3. LEVOFLOXACIN [Suspect]
     Active Substance: LEVOFLOXACIN
     Indication: Chemotherapy
     Dosage: UNK
     Route: 065
  4. CISPLATIN [Suspect]
     Active Substance: CISPLATIN
     Indication: Chemotherapy
     Dosage: D1-6
     Route: 065
     Dates: start: 2020
  5. CISPLATIN [Suspect]
     Active Substance: CISPLATIN
     Indication: Germ cell cancer
  6. FILGRASTIM [Suspect]
     Active Substance: FILGRASTIM
     Indication: Chemotherapy
     Dosage: UNK
     Route: 065
  7. IFOSFAMIDE [Suspect]
     Active Substance: IFOSFAMIDE
     Indication: Chemotherapy
     Dosage: D1-6
     Route: 065
  8. IFOSFAMIDE [Suspect]
     Active Substance: IFOSFAMIDE
     Indication: Germ cell cancer
  9. VANCOMYCIN [Concomitant]
     Active Substance: VANCOMYCIN
     Indication: Chemotherapy
     Dosage: UNK
     Route: 065
  10. LIPEGFILGRASTIM [Concomitant]
     Active Substance: LIPEGFILGRASTIM
     Indication: Prophylaxis
     Dosage: UNK
     Route: 065
  11. FILGRASTIM [Concomitant]
     Active Substance: FILGRASTIM
     Route: 065
  12. CISPLATIN [Concomitant]
     Active Substance: CISPLATIN
     Dosage: D1-6
     Route: 065
  13. IFOSFAMIDE [Concomitant]
     Active Substance: IFOSFAMIDE
     Indication: Chemotherapy
     Dosage: UNK
     Route: 065
     Dates: start: 2020

REACTIONS (9)
  - Ileus [Recovered/Resolved]
  - Body temperature abnormal [Recovered/Resolved]
  - Thrombocytopenia [Recovered/Resolved]
  - Sepsis [Recovered/Resolved]
  - Haematotoxicity [Unknown]
  - Febrile neutropenia [Unknown]
  - Oral candidiasis [Recovered/Resolved]
  - Off label use [Unknown]
  - Product use in unapproved indication [Unknown]

NARRATIVE: CASE EVENT DATE: 20200101
